FAERS Safety Report 22083725 (Version 1)
Quarter: 2023Q1

REPORT INFORMATION
  Report Type: Spontaneous
  Country: TZ (occurrence: TZ)
  Receive Date: 20230310
  Receipt Date: 20230310
  Transmission Date: 20230417
  Serious: Yes (Death)
  Sender: FDA-Public Use
  Company Number: TZ-002147023-NVSC2023TZ054999

PATIENT
  Sex: Female

DRUGS (1)
  1. GLIVEC [Suspect]
     Active Substance: IMATINIB MESYLATE
     Indication: Gastrointestinal stromal tumour
     Dosage: 400 MG (4 X 100MG)
     Route: 065

REACTIONS (5)
  - Metastases to bone [Fatal]
  - Spinal cord compression [Fatal]
  - Atelectasis [Fatal]
  - Pulmonary embolism [Fatal]
  - Pleural effusion [Fatal]
